FAERS Safety Report 9013476 (Version 1)
Quarter: 2013Q1

REPORT INFORMATION
  Report Type: Spontaneous
  Country: US (occurrence: None)
  Receive Date: 20130107
  Receipt Date: 20130107
  Transmission Date: 20140127
  Serious: No
  Sender: FDA-Public Use
  Company Number: None

PATIENT
  Age: 70 Year
  Sex: Male
  Weight: 86.1 kg

DRUGS (1)
  1. LIDOCAINE [Suspect]
     Indication: KNEE ARTHROPLASTY
     Dates: start: 20121109, end: 20121109

REACTIONS (4)
  - Dizziness [None]
  - Vertigo [None]
  - Nausea [None]
  - Abdominal discomfort [None]
